FAERS Safety Report 21732517 (Version 3)
Quarter: 2024Q3

REPORT INFORMATION
  Report Type: Spontaneous
  Country: FR (occurrence: FR)
  Receive Date: 20221215
  Receipt Date: 20240927
  Transmission Date: 20241017
  Serious: Yes (Other)
  Sender: RANBAXY
  Company Number: FR-SUN PHARMACEUTICAL INDUSTRIES LTD-2022R1-368867

PATIENT
  Age: 24 Year
  Sex: Male

DRUGS (2)
  1. ACETAZOLAMIDE [Suspect]
     Active Substance: ACETAZOLAMIDE
     Indication: Herpes ophthalmic
     Dosage: UNK
     Route: 048
  2. VALACYCLOVIR [Concomitant]
     Active Substance: VALACYCLOVIR HYDROCHLORIDE
     Indication: Ophthalmic herpes simplex
     Dosage: 500 MILLIGRAM
     Route: 042

REACTIONS (4)
  - Intraocular pressure decreased [Unknown]
  - Retinopathy sickle cell [Unknown]
  - Arterial occlusive disease [Unknown]
  - Sickle cell trait [Unknown]
